FAERS Safety Report 5236716-7 (Version None)
Quarter: 2007Q1

REPORT INFORMATION
  Report Type: 
  Country: None (occurrence: None)
  Receive Date: 20070209
  Receipt Date: 20061102
  Transmission Date: 20070707
  Serious: Yes (Other)
  Sender: FDA-Public Use
  Company Number: 2006VX002194

PATIENT
  Age: 61 Year
  Sex: Female

DRUGS (4)
  1. TASMAR [Suspect]
     Indication: PARKINSON'S DISEASE
     Dosage: 100 MG, PO
     Route: 048
     Dates: start: 20060823, end: 20060912
  2. MADOPAR [Concomitant]
  3. PRAMIPEXOLE DIHYDROCHLORIDE [Concomitant]
  4. SINEMET CR [Concomitant]

REACTIONS (1)
  - HEPATITIS [None]
